FAERS Safety Report 7440552-0 (Version None)
Quarter: 2011Q2

REPORT INFORMATION
  Report Type: 
  Country: None (occurrence: None)
  Receive Date: 20110427
  Receipt Date: 20110422
  Transmission Date: 20111010
  Serious: Yes (Disabling, Other)
  Sender: FDA-Public Use
  Company Number: A0920713A

PATIENT
  Age: 9 Year
  Sex: Male
  Weight: 39.5 kg

DRUGS (2)
  1. NO CONCURRENT MEDICATION [Concomitant]
  2. LAMICTAL [Suspect]
     Route: 048
     Dates: start: 20110228, end: 20110310

REACTIONS (7)
  - STEVENS-JOHNSON SYNDROME [None]
  - EYE SWELLING [None]
  - ULCER [None]
  - RASH [None]
  - AURICULAR SWELLING [None]
  - DEHYDRATION [None]
  - DRUG PRESCRIBING ERROR [None]
